FAERS Safety Report 17318562 (Version 3)
Quarter: 2020Q2

REPORT INFORMATION
  Report Type: Spontaneous
  Country: NO (occurrence: NO)
  Receive Date: 20200124
  Receipt Date: 20200406
  Transmission Date: 20200713
  Serious: Yes (Death)
  Sender: FDA-Public Use
  Company Number: NO-NAPPMUNDI-GBR-2020-0074704

PATIENT
  Weight: 2.9 kg

DRUGS (1)
  1. NON-PMN MORPHINE SULFATE [Suspect]
     Active Substance: MORPHINE SULFATE
     Indication: PRODUCT USED FOR UNKNOWN INDICATION
     Dosage: UNK (1.5 CGM)
     Route: 064

REACTIONS (5)
  - Neonatal asphyxia [Fatal]
  - Maternal exposure during pregnancy [Fatal]
  - Gait disturbance [Fatal]
  - Cyanosis neonatal [Fatal]
  - Premature baby [Fatal]
